FAERS Safety Report 8931469 (Version 1)
Quarter: 2012Q4

REPORT INFORMATION
  Report Type: Report from Study
  Country: US (occurrence: US)
  Receive Date: 20121121
  Receipt Date: 20121121
  Transmission Date: 20130627
  Serious: Yes (Hospitalization)
  Sender: FDA-Public Use
  Company Number: US-ASTELLAS-1060587

PATIENT
  Age: 79 Year
  Sex: Male
  Weight: 73.6 kg

DRUGS (20)
  1. BLINDED GDC-0980 (PI3K/MTOR INHIBITOR) [Suspect]
     Indication: PROSTATE CANCER
     Dosage: dose blinded, 14/Apr/2012:last dose prior to onset of SAE
     Route: 048
     Dates: start: 20120404
  2. ABIRATERONE ACETATE [Suspect]
     Indication: PROSTATE CANCER
     Dosage: 14/Apr/2012: last dose prior to event, last dose 1000 mg
     Route: 048
     Dates: start: 20120404
  3. PREDNISONE [Suspect]
     Indication: PROSTATE CANCER
     Dosage: last dose 5 mg. date of last dose prior to sae 14 Apr 2012
     Route: 048
     Dates: start: 20120404
  4. KCL [Concomitant]
     Indication: HYPOKALAEMIA
     Dosage: dose: 20 other
     Route: 048
     Dates: start: 20120418, end: 20120420
  5. LEVEMIR [Concomitant]
     Indication: HYPERGLYCAEMIA
     Dosage: dose: 10 units
     Route: 048
     Dates: start: 20120420
  6. INSULIN [Concomitant]
     Indication: HYPERGLYCAEMIA
     Dosage: dose: 100 units
     Route: 030
     Dates: start: 20120406
  7. HYDROCODONE [Concomitant]
     Indication: BONE PAIN
     Dosage: dose: 1 unit
     Route: 048
     Dates: start: 20110127
  8. PREDNISONE [Concomitant]
     Indication: BONE PAIN
     Route: 048
     Dates: start: 20110523
  9. AMBIEN CR [Concomitant]
     Indication: INSOMNIA
     Route: 048
     Dates: start: 2011
  10. SIMVASTATIN [Concomitant]
     Indication: HYPERLIPIDAEMIA
     Route: 048
     Dates: start: 2009
  11. TRELSTAR (UNITED STATES) [Concomitant]
     Indication: PROSTATE CANCER
     Route: 030
     Dates: start: 20110119
  12. COMPAZINE [Concomitant]
     Indication: PROPHYLAXIS OF NAUSEA AND VOMITING
     Route: 048
     Dates: start: 20120315
  13. XGEVA [Concomitant]
     Indication: METASTASES TO BONE
     Route: 058
     Dates: start: 20111101, end: 20120423
  14. TYLENOL [Concomitant]
     Indication: PYREXIA
     Route: 048
     Dates: start: 20120415, end: 20120415
  15. NORMAL SALINE [Concomitant]
     Indication: RASH
     Route: 042
     Dates: start: 20120415, end: 20120415
  16. CIPRO [Concomitant]
     Indication: RASH
     Route: 042
     Dates: start: 20120415, end: 20120415
  17. LEVEMIR [Concomitant]
     Indication: HYPERGLYCAEMIA
     Dosage: dose: 20 units
     Route: 048
     Dates: start: 20120417, end: 20120420
  18. SOLU-MEDROL [Concomitant]
     Indication: RASH
     Dosage: dose: unknown
     Route: 042
     Dates: start: 20120415, end: 20120415
  19. ZYTIGA [Concomitant]
     Indication: PROSTATE CANCER
     Route: 048
     Dates: start: 20120507
  20. MAGNESIUM SULFATE [Concomitant]
     Indication: HYPOVOLAEMIA
     Route: 042
     Dates: start: 20120418, end: 20120420

REACTIONS (2)
  - Rash maculo-papular [Recovered/Resolved]
  - Hypotension [Recovered/Resolved]
